FAERS Safety Report 24601203 (Version 4)
Quarter: 2025Q1

REPORT INFORMATION
  Report Type: Spontaneous
  Country: JP (occurrence: JP)
  Receive Date: 20241111
  Receipt Date: 20250109
  Transmission Date: 20250408
  Serious: No
  Sender: JOHNSON AND JOHNSON
  Company Number: JP-JNJFOC-20241074680

PATIENT
  Age: 56 Year
  Sex: Female

DRUGS (2)
  1. SIMPONI [Suspect]
     Active Substance: GOLIMUMAB
     Indication: Rheumatoid arthritis
     Dosage: STRENGTH:50.00 MG / 0.50 ML
     Route: 058
     Dates: start: 20241019, end: 20241019
  2. SIMPONI [Suspect]
     Active Substance: GOLIMUMAB
     Dosage: STRENGTH:50.00 MG / 0.50 ML
     Route: 058
     Dates: start: 2024

REACTIONS (4)
  - Needle issue [Unknown]
  - Injury associated with device [Unknown]
  - Device deployment issue [Unknown]
  - Medication error [Unknown]

NARRATIVE: CASE EVENT DATE: 20241019
